FAERS Safety Report 6509942-4 (Version None)
Quarter: 2009Q4

REPORT INFORMATION
  Report Type: 
  Country: None (occurrence: None)
  Receive Date: 20091222
  Receipt Date: 20091214
  Transmission Date: 20100525
  Serious: Yes (Other)
  Sender: FDA-Public Use
  Company Number: PHHY2009AR55450

PATIENT
  Sex: Male

DRUGS (1)
  1. RASILEZ [Suspect]
     Indication: HYPERTENSION
     Dosage: 1 DF/DAY
     Route: 048
     Dates: start: 20091123, end: 20091207

REACTIONS (2)
  - SENSATION OF HEAVINESS [None]
  - SOMNOLENCE [None]
